FAERS Safety Report 5663654-8 (Version None)
Quarter: 2008Q1

REPORT INFORMATION
  Report Type: 
  Country: None (occurrence: None)
  Receive Date: 20080307
  Receipt Date: 20080303
  Transmission Date: 20080703
  Serious: Yes (Death)
  Sender: FDA-Public Use
  Company Number: 2008-00733

PATIENT
  Age: 68 Year
  Sex: Male
  Weight: 51 kg

DRUGS (9)
  1. VELCADE [Suspect]
     Indication: MULTIPLE MYELOMA
     Dosage: 1.98 MG, INTRAVENOUS; 1.90 MG, INTRAVENOUS
     Route: 042
     Dates: start: 20070903, end: 20070903
  2. VELCADE [Suspect]
     Indication: MULTIPLE MYELOMA
     Dosage: 1.98 MG, INTRAVENOUS; 1.90 MG, INTRAVENOUS
     Route: 042
     Dates: start: 20070913, end: 20070927
  3. ALENDRONATE SODIUM [Concomitant]
  4. PREDNISOLONE [Concomitant]
  5. PANTOSIN (PANTETHINE) [Concomitant]
  6. KAMAG G (MAGNESIUM OXIDE) [Concomitant]
  7. DASEN (SERRAPEPTASE) [Concomitant]
  8. PURSENNID (SENNA LEAF) [Concomitant]
  9. GRAMALIL (TIAPRIDE HYDROCHLOIRDE) [Concomitant]

REACTIONS (1)
  - DROWNING [None]
